FAERS Safety Report 12835126 (Version 2)
Quarter: 2017Q2

REPORT INFORMATION
  Report Type: Spontaneous
  Country: US (occurrence: US)
  Receive Date: 20161010
  Receipt Date: 20170418
  Transmission Date: 20170830
  Serious: No
  Sender: FDA-Public Use
  Company Number: US-ASTRAZENECA-2016SF04409

PATIENT
  Sex: Male

DRUGS (5)
  1. SEROQUEL XR [Suspect]
     Active Substance: QUETIAPINE FUMARATE
     Indication: DEPRESSION
     Route: 048
  2. VENLAFAXINE [Concomitant]
     Active Substance: VENLAFAXINE HYDROCHLORIDE
     Indication: DEPRESSION
  3. SYMBICORT [Suspect]
     Active Substance: BUDESONIDE\FORMOTEROL FUMARATE DIHYDRATE
     Indication: ASTHMA
     Dosage: 80/4.5 MCG, UNKNOWN UNKNOWN
     Route: 055
  4. SYMBICORT [Suspect]
     Active Substance: BUDESONIDE\FORMOTEROL FUMARATE DIHYDRATE
     Indication: ASTHMA
     Dosage: 160/4.5 TWO INHALATIONS TWICE A DAY  UNKNOWN
     Route: 055
  5. ALBUTEROL. [Concomitant]
     Active Substance: ALBUTEROL

REACTIONS (3)
  - Dyspnoea [Not Recovered/Not Resolved]
  - Dizziness [Unknown]
  - Fatigue [Unknown]
